FAERS Safety Report 9728063 (Version 1)
Quarter: 2013Q4

REPORT INFORMATION
  Report Type: Spontaneous
  Country: US (occurrence: US)
  Receive Date: 20131204
  Receipt Date: 20131204
  Transmission Date: 20140711
  Serious: Yes (Other)
  Sender: FDA-Public Use
  Company Number: PHEH2013US024983

PATIENT
  Sex: Female

DRUGS (5)
  1. GILENYA [Suspect]
     Dosage: 0.5 MG, QD
     Route: 048
  2. PROVIGIL [Concomitant]
  3. DIAZEPAM [Concomitant]
  4. ABILIFY [Concomitant]
  5. VENLAFAXINE [Concomitant]

REACTIONS (1)
  - Macular degeneration [Unknown]
